FAERS Safety Report 9121459 (Version 3)
Quarter: 2013Q2

REPORT INFORMATION
  Report Type: Spontaneous
  Country: US (occurrence: US)
  Receive Date: 20130227
  Receipt Date: 20130523
  Transmission Date: 20140414
  Serious: No
  Sender: FDA-Public Use
  Company Number: US-009507513-1302USA010899

PATIENT
  Sex: 0

DRUGS (1)
  1. AZASITE [Suspect]
     Dosage: 1 GTT, QD BOTH EYES

REACTIONS (2)
  - Drug prescribing error [Unknown]
  - Product quality issue [Unknown]
